FAERS Safety Report 14964723 (Version 1)
Quarter: 2018Q2

REPORT INFORMATION
  Report Type: Spontaneous
  Country: US (occurrence: US)
  Receive Date: 20180601
  Receipt Date: 20180601
  Transmission Date: 20180711
  Serious: Yes (Death, Hospitalization)
  Sender: FDA-Public Use
  Company Number: US-JNJFOC-NSADSS2002002091

PATIENT
  Age: 62 Year
  Sex: Female
  Weight: 39.01 kg

DRUGS (17)
  1. ZANTAC [Concomitant]
     Active Substance: RANITIDINE HYDROCHLORIDE
  2. FOLIC ACID. [Concomitant]
     Active Substance: FOLIC ACID
     Route: 065
  3. TYLENOL WITH CODEINE [Concomitant]
     Active Substance: ACETAMINOPHEN\CODEINE PHOSPHATE
     Route: 065
  4. LOMOTIL [Concomitant]
     Active Substance: ATROPINE SULFATE\DIPHENOXYLATE HYDROCHLORIDE
  5. ACETAMINOPHEN/CODIENE [Concomitant]
  6. IMODIUM [Concomitant]
     Active Substance: LOPERAMIDE HYDROCHLORIDE
     Route: 065
  7. PENTASA [Concomitant]
     Active Substance: MESALAMINE
  8. VALIUM [Concomitant]
     Active Substance: DIAZEPAM
     Route: 065
  9. REMICADE [Suspect]
     Active Substance: INFLIXIMAB
     Route: 042
  10. PREDNISONE. [Suspect]
     Active Substance: PREDNISONE
     Indication: PRODUCT USED FOR UNKNOWN INDICATION
     Route: 065
  11. RISPERDAL [Concomitant]
     Active Substance: RISPERIDONE
     Dates: end: 200402
  12. ELAVIL [Concomitant]
     Active Substance: AMITRIPTYLINE HYDROCHLORIDE
     Route: 065
  13. REMICADE [Suspect]
     Active Substance: INFLIXIMAB
     Indication: CROHN^S DISEASE
     Route: 042
     Dates: start: 20000815, end: 20000815
  14. PROZAC [Concomitant]
     Active Substance: FLUOXETINE HYDROCHLORIDE
     Route: 065
  15. PAREGORIC [Concomitant]
     Active Substance: MORPHINE
     Route: 065
  16. AZULFIDINE [Concomitant]
     Active Substance: SULFASALAZINE
     Route: 065
  17. FENTANYL. [Concomitant]
     Active Substance: FENTANYL

REACTIONS (14)
  - Brain stem haemorrhage [Fatal]
  - Chills [Unknown]
  - Hypertension [Fatal]
  - Dehydration [Unknown]
  - Mycobacterium chelonae infection [Unknown]
  - Accidental overdose [Unknown]
  - Weight decreased [Unknown]
  - Gastrointestinal disorder [Unknown]
  - Joint swelling [Unknown]
  - Anaemia [Unknown]
  - Loss of consciousness [Unknown]
  - Chest pain [Unknown]
  - Mycobacterium avium complex infection [Unknown]
  - Confusional state [Unknown]

NARRATIVE: CASE EVENT DATE: 2000
